FAERS Safety Report 8518003-4 (Version None)
Quarter: 2012Q3

REPORT INFORMATION
  Report Type: 
  Country: None (occurrence: None)
  Receive Date: 20120718
  Receipt Date: 20110728
  Transmission Date: 20120928
  Serious: Yes (Hospitalization)
  Sender: FDA-Public Use
  Company Number: US-BRISTOL-MYERS SQUIBB COMPANY-15932668

PATIENT
  Age: 68 Year
  Sex: Female
  Weight: 68 kg

DRUGS (2)
  1. WARFARIN SODIUM [Suspect]
  2. COUMADIN [Suspect]
     Dates: start: 20100101

REACTIONS (3)
  - ULCER HAEMORRHAGE [None]
  - ASTHENIA [None]
  - ANAEMIA [None]
